FAERS Safety Report 19009613 (Version 1)
Quarter: 2021Q1

REPORT INFORMATION
  Report Type: Spontaneous
  Country: US (occurrence: US)
  Receive Date: 20210315
  Receipt Date: 20210315
  Transmission Date: 20210420
  Serious: No
  Sender: FDA-Public Use
  Company Number: US-GLAXOSMITHKLINE-US2021AMR060339

PATIENT
  Age: 12 Year
  Sex: Female

DRUGS (3)
  1. LAMICTAL [Suspect]
     Active Substance: LAMOTRIGINE
     Indication: EPILEPSY
     Dosage: UNK 25 MG
     Dates: start: 2020
  2. LAMICTAL XR [Suspect]
     Active Substance: LAMOTRIGINE
     Indication: EPILEPSY
     Dosage: UNK
  3. KEPPRA [Suspect]
     Active Substance: LEVETIRACETAM
     Indication: EPILEPSY
     Dosage: UNK
     Dates: start: 2020

REACTIONS (8)
  - Tremor [Not Recovered/Not Resolved]
  - Coordination abnormal [Recovered/Resolved]
  - Nausea [Recovered/Resolved]
  - Gait disturbance [Not Recovered/Not Resolved]
  - Product administered to patient of inappropriate age [Unknown]
  - Dysstasia [Not Recovered/Not Resolved]
  - Vomiting [Recovered/Resolved]
  - Diplopia [Recovered/Resolved]
